FAERS Safety Report 22124827 (Version 2)
Quarter: 2023Q1

REPORT INFORMATION
  Report Type: Spontaneous
  Country: US (occurrence: US)
  Receive Date: 20230322
  Receipt Date: 20230330
  Transmission Date: 20230417
  Serious: Yes (Other)
  Sender: FDA-Public Use
  Company Number: US-OTSUKA-2023_007228

PATIENT
  Age: 59 Year
  Sex: Male

DRUGS (3)
  1. ABILIFY [Suspect]
     Active Substance: ARIPIPRAZOLE
     Indication: Depression
     Dosage: UNK
     Route: 065
     Dates: start: 2017
  2. ABILIFY [Suspect]
     Active Substance: ARIPIPRAZOLE
     Indication: Anxiety
  3. NUEDEXTA [Suspect]
     Active Substance: DEXTROMETHORPHAN HYDROBROMIDE\QUINIDINE SULFATE
     Indication: Affect lability
     Dosage: UNK
     Route: 065

REACTIONS (5)
  - Tardive dyskinesia [Not Recovered/Not Resolved]
  - Parkinsonism [Not Recovered/Not Resolved]
  - Inability to afford medication [Unknown]
  - Therapy interrupted [Unknown]
  - Product use in unapproved indication [Unknown]

NARRATIVE: CASE EVENT DATE: 20170101
